FAERS Safety Report 7281750-9 (Version None)
Quarter: 2011Q1

REPORT INFORMATION
  Report Type: 
  Country: None (occurrence: None)
  Receive Date: 20110208
  Receipt Date: 20100429
  Transmission Date: 20110831
  Serious: No
  Sender: FDA-Public Use
  Company Number: US-PFIZER INC-2010055106

PATIENT
  Sex: Male

DRUGS (3)
  1. LISINOPRIL [Concomitant]
     Indication: HYPERTENSION
     Dosage: 40 MG, UNK
  2. AMLODIPINE [Concomitant]
     Indication: HYPERTENSION
     Dosage: 10 MG, UNK
  3. SUTENT [Suspect]
     Indication: RENAL CELL CARCINOMA
     Dosage: 50 MG, DAILY
     Route: 048
     Dates: start: 20100407, end: 20100418

REACTIONS (1)
  - INFLUENZA [None]
